FAERS Safety Report 8099694-1 (Version None)
Quarter: 2012Q1

REPORT INFORMATION
  Report Type: 
  Country: None (occurrence: None)
  Receive Date: 20120129
  Receipt Date: 20111010
  Transmission Date: 20120608
  Serious: No
  Sender: FDA-Public Use
  Company Number: US-ABBOTT-11P-163-0862367-00

PATIENT
  Age: 53 Year
  Sex: Male

DRUGS (2)
  1. HUMALOG [Concomitant]
     Indication: DIABETES MELLITUS
     Dosage: 25 UNITS IN MORNING,30 UNITS AT BEDTIME
  2. HUMIRA [Suspect]
     Indication: PSORIASIS
     Dates: start: 20110902

REACTIONS (2)
  - RHINORRHOEA [None]
  - COUGH [None]
